FAERS Safety Report 23658703 (Version 1)
Quarter: 2024Q1

REPORT INFORMATION
  Report Type: Spontaneous
  Country: US (occurrence: US)
  Receive Date: 20240321
  Receipt Date: 20240321
  Transmission Date: 20240410
  Serious: No
  Sender: FDA-Public Use
  Company Number: US-ABBVIE-5682063

PATIENT
  Age: 71 Year
  Sex: Female

DRUGS (1)
  1. LEVOTHYROXINE [Suspect]
     Active Substance: LEVOTHYROXINE\LEVOTHYROXINE SODIUM
     Indication: Product used for unknown indication
     Dosage: FORM STRENGTH: 75 MICROGRAM
     Route: 048

REACTIONS (4)
  - Grip strength decreased [Not Recovered/Not Resolved]
  - Vomiting [Unknown]
  - Burnout syndrome [Unknown]
  - Product lot number issue [Not Recovered/Not Resolved]

NARRATIVE: CASE EVENT DATE: 20240314
